FAERS Safety Report 16831642 (Version 1)
Quarter: 2019Q4

REPORT INFORMATION
  Report Type: Spontaneous
  Country: US (occurrence: US)
  Receive Date: 20190919
  Receipt Date: 20190919
  Transmission Date: 20200122
  Serious: Yes (Life-Threatening, Hospitalization, Disabling, Other)
  Sender: FDA-Public Use
  Company Number: None

PATIENT
  Age: 32 Year
  Sex: Male
  Weight: 67.5 kg

DRUGS (5)
  1. SHIFT (CANNABIDIOL\.DELTA.8-TETRAHYDROCANNABINOL\DEVICE\HERBALS) [Suspect]
     Active Substance: CANNABIDIOL\.DELTA.8-TETRAHYDROCANNABINOL\DEVICE\HERBALS
     Indication: INSOMNIA
     Dosage: ?          QUANTITY:1 INHALATION(S);?
     Route: 055
     Dates: start: 20190815, end: 20190918
  2. METHYLPREDINSILONE [Concomitant]
  3. HEB ONE DAILY MEN^S VITAMIN [Concomitant]
  4. ADVANCEC TRICHOLOGY DHT BLOCKER WITH IMMUNE SUPPORT [Concomitant]
  5. ALBUTEROL SULFATE. [Concomitant]
     Active Substance: ALBUTEROL SULFATE

REACTIONS (2)
  - Pneumonitis [None]
  - Dyspnoea [None]

NARRATIVE: CASE EVENT DATE: 20190918
